FAERS Safety Report 15417775 (Version 9)
Quarter: 2021Q3

REPORT INFORMATION
  Report Type: Spontaneous
  Country: HR (occurrence: HR)
  Receive Date: 20180924
  Receipt Date: 20210913
  Transmission Date: 20211014
  Serious: Yes (Disabling, Other)
  Sender: FDA-Public Use
  Company Number: HR-EMD SERONO-9044063

PATIENT
  Age: 70 Year
  Sex: Male
  Weight: 78 kg

DRUGS (5)
  1. BAVENCIO [Suspect]
     Active Substance: AVELUMAB
     Indication: NEUROENDOCRINE CARCINOMA OF THE SKIN
     Route: 042
     Dates: start: 20180515
  2. BAVENCIO [Suspect]
     Active Substance: AVELUMAB
     Route: 042
     Dates: start: 20190208
  3. CHLOROPYRAMINE HYDROCHLORIDE [Concomitant]
     Active Substance: CHLOROPYRAMINE HYDROCHLORIDE
     Indication: PREMEDICATION
     Route: 042
  4. PARACETAMOL [Concomitant]
     Active Substance: ACETAMINOPHEN
     Indication: PREMEDICATION
     Route: 048
  5. BAVENCIO [Suspect]
     Active Substance: AVELUMAB
     Route: 042
     Dates: start: 20180626, end: 201807

REACTIONS (7)
  - Noninfective sialoadenitis [Unknown]
  - Guillain-Barre syndrome [Not Recovered/Not Resolved]
  - Herpes simplex test positive [Unknown]
  - Vestibular function test abnormal [Unknown]
  - Epstein-Barr virus test positive [Unknown]
  - Adrenal insufficiency [Unknown]
  - Dry mouth [Unknown]

NARRATIVE: CASE EVENT DATE: 20180710
